FAERS Safety Report 18972102 (Version 1)
Quarter: 2021Q1

REPORT INFORMATION
  Report Type: Spontaneous
  Country: US (occurrence: US)
  Receive Date: 20210305
  Receipt Date: 20210305
  Transmission Date: 20210420
  Serious: Yes (Life-Threatening, Hospitalization, Other)
  Sender: FDA-Public Use
  Company Number: US-ALVOGEN-2021-ALVOGEN-116655

PATIENT
  Sex: Male

DRUGS (4)
  1. BUPROPION. [Suspect]
     Active Substance: BUPROPION
     Indication: PRODUCT USED FOR UNKNOWN INDICATION
     Route: 064
  2. QUETIAPINE. [Interacting]
     Active Substance: QUETIAPINE
     Indication: PRODUCT USED FOR UNKNOWN INDICATION
     Route: 064
  3. VENLAFAXINE [Interacting]
     Active Substance: VENLAFAXINE HYDROCHLORIDE
     Indication: PRODUCT USED FOR UNKNOWN INDICATION
     Route: 064
  4. GABAPENTIN. [Concomitant]
     Active Substance: GABAPENTIN
     Indication: PRODUCT USED FOR UNKNOWN INDICATION
     Dosage: 1200 MG 3 TIMES DAILY
     Route: 064

REACTIONS (9)
  - Drug interaction [Recovered/Resolved]
  - Neonatal toxicity [Recovered/Resolved]
  - Feeling jittery [Recovered/Resolved]
  - Encephalopathy [Recovered/Resolved]
  - Foetal exposure during pregnancy [Unknown]
  - Hyperreflexia [Recovered/Resolved]
  - Hypotonia neonatal [Recovered/Resolved]
  - Cerebral disorder [Recovered/Resolved]
  - Neonatal behavioural syndrome [Recovered/Resolved]
